FAERS Safety Report 6282200-1 (Version None)
Quarter: 2009Q3

REPORT INFORMATION
  Report Type: 
  Country: None (occurrence: None)
  Receive Date: 20090724
  Receipt Date: 20090719
  Transmission Date: 20100115
  Serious: Yes (Other)
  Sender: FDA-Public Use
  Company Number: US-JNJCH-2009019739

PATIENT
  Sex: Female

DRUGS (1)
  1. LISTERINE WHITENING PRE-BRUSH RINSE [Suspect]
     Indication: DENTAL CARE
     Dosage: TEXT:USED 1/2 BOTTLE;FREQUENCY OF UNSPECIFIED
     Route: 048

REACTIONS (2)
  - DYSPHAGIA [None]
  - FUNGAL INFECTION [None]
